FAERS Safety Report 6706164-9 (Version None)
Quarter: 2010Q2

REPORT INFORMATION
  Report Type: 
  Country: None (occurrence: None)
  Receive Date: 20100503
  Receipt Date: 20100421
  Transmission Date: 20101027
  Serious: Yes (Hospitalization)
  Sender: FDA-Public Use
  Company Number: GB-PFIZER INC-2010050144

PATIENT
  Age: 48 Year
  Sex: Female

DRUGS (4)
  1. CHAMPIX [Suspect]
     Indication: SMOKING CESSATION THERAPY
     Dosage: 500 UG, UNK
     Route: 048
     Dates: start: 20100326, end: 20100414
  2. CLOZAPINE [Suspect]
     Indication: SCHIZOPHRENIA
     Dosage: UNK
     Route: 048
  3. FEMULEN [Concomitant]
     Dosage: UNK
  4. SERTRALINE [Concomitant]
     Dosage: UNK

REACTIONS (3)
  - DYSARTHRIA [None]
  - LACUNAR INFARCTION [None]
  - MUSCULAR WEAKNESS [None]
